FAERS Safety Report 8120873-9 (Version None)
Quarter: 2012Q1

REPORT INFORMATION
  Report Type: 
  Country: None (occurrence: None)
  Receive Date: 20120203
  Receipt Date: 20120125
  Transmission Date: 20120608
  Serious: Yes (Congenital Anomaly)
  Sender: FDA-Public Use
  Company Number: IMP_05724_2012

PATIENT
  Sex: Male

DRUGS (1)
  1. BUDEPRION 150 MG (NOT SPECIFIED) [Suspect]
     Indication: PRODUCT USED FOR UNKNOWN INDICATION
     Dosage: (DF)

REACTIONS (4)
  - EAR MALFORMATION [None]
  - CLEFT LIP AND PALATE [None]
  - MATERNAL DRUGS AFFECTING FOETUS [None]
  - CONGENITAL EYE DISORDER [None]
